FAERS Safety Report 7773471-0 (Version None)
Quarter: 2011Q3

REPORT INFORMATION
  Report Type: 
  Country: None (occurrence: None)
  Receive Date: 20110922
  Receipt Date: 20110913
  Transmission Date: 20111222
  Serious: Yes (Hospitalization)
  Sender: FDA-Public Use
  Company Number: US-ASTRAZENECA-2011SE55105

PATIENT
  Age: 38 Year
  Sex: Female

DRUGS (3)
  1. PULMICORT [Suspect]
     Route: 055
  2. SYMBICORT [Suspect]
     Route: 055
  3. PULMICORT [Suspect]
     Route: 055

REACTIONS (2)
  - METEOROPATHY [None]
  - MALAISE [None]
